FAERS Safety Report 16160347 (Version 4)
Quarter: 2019Q2

REPORT INFORMATION
  Report Type: Spontaneous
  Country: DE (occurrence: DE)
  Receive Date: 20190404
  Receipt Date: 20190510
  Transmission Date: 20190711
  Serious: Yes (Death, Hospitalization, Other)
  Sender: FDA-Public Use
  Company Number: DE-009507513-1904DEU001159

PATIENT
  Age: 62 Year
  Sex: Female
  Weight: 60 kg

DRUGS (2)
  1. KEYTRUDA [Suspect]
     Active Substance: PEMBROLIZUMAB
     Indication: NON-SMALL CELL LUNG CANCER
     Dosage: 200 MILLIGRAM, 3 WEEKS,CYCLE 1
     Route: 042
     Dates: start: 20190319, end: 20190319
  2. DEXAMETHASONE. [Concomitant]
     Active Substance: DEXAMETHASONE
     Indication: METASTASES TO CENTRAL NERVOUS SYSTEM
     Dosage: 12 MILLIGRAM
     Route: 048
     Dates: start: 20190218

REACTIONS (7)
  - Anaemia [Unknown]
  - Tumour haemorrhage [Unknown]
  - Haemoptysis [Fatal]
  - Malignant neoplasm progression [Unknown]
  - Thrombocytopenia [Fatal]
  - Haematuria [Fatal]
  - Laryngeal oedema [Unknown]

NARRATIVE: CASE EVENT DATE: 2019
